FAERS Safety Report 7790613-1 (Version None)
Quarter: 2011Q3

REPORT INFORMATION
  Report Type: 
  Country: None (occurrence: None)
  Receive Date: 20110930
  Receipt Date: 20101213
  Transmission Date: 20111222
  Serious: No
  Sender: FDA-Public Use
  Company Number: US-BAYER-2010-008004

PATIENT
  Age: 46 Year
  Sex: Male

DRUGS (6)
  1. LEVITRA [Suspect]
     Indication: ERECTILE DYSFUNCTION
     Dosage: 20 MG, TIW
     Route: 048
  2. FLUOXETINE [Concomitant]
     Dosage: 50 MG, QD
  3. LEVITRA [Suspect]
     Dosage: 20 MG, TIW
  4. SIMVASTATIN [Concomitant]
     Dosage: 120 MG, UNK
  5. LEVOTHYROXINE [Concomitant]
     Dosage: 250 UNK, UNK
  6. FENOFIBRATE [Concomitant]
     Dosage: 160 MG, QD

REACTIONS (1)
  - DRUG INEFFECTIVE [None]
